FAERS Safety Report 6926135-7 (Version None)
Quarter: 2010Q3

REPORT INFORMATION
  Report Type: 
  Country: None (occurrence: None)
  Receive Date: 20100816
  Receipt Date: 20100806
  Transmission Date: 20110219
  Serious: Yes (Other)
  Sender: FDA-Public Use
  Company Number: US-AMGEN-QUU429683

PATIENT

DRUGS (1)
  1. SENSIPAR [Suspect]
     Indication: SECONDARY HYPERTHYROIDISM

REACTIONS (1)
  - HYPERCALCAEMIA [None]
